FAERS Safety Report 6384502-7 (Version None)
Quarter: 2009Q3

REPORT INFORMATION
  Report Type: 
  Country: None (occurrence: None)
  Receive Date: 20090929
  Receipt Date: 20090914
  Transmission Date: 20100115
  Serious: Yes (Other)
  Sender: FDA-Public Use
  Company Number: 2009AP003751

PATIENT
  Age: 52 Year
  Sex: Male

DRUGS (6)
  1. MYCOPHENOLATE MOFETIL [Suspect]
  2. CYCLOSPORINE [Suspect]
  3. PREDNISOLONE [Suspect]
  4. CAMPATH [Concomitant]
  5. FLUDARABINE PHOSPHATE [Concomitant]
  6. MELPHALAN (MELPHALAN) [Concomitant]

REACTIONS (5)
  - GASTROENTERITIS NOROVIRUS [None]
  - GRAFT VERSUS HOST DISEASE [None]
  - GRAFT VERSUS HOST DISEASE IN LUNG [None]
  - NAUSEA [None]
  - STEM CELL TRANSPLANT [None]
